FAERS Safety Report 7125988-X (Version None)
Quarter: 2010Q4

REPORT INFORMATION
  Report Type: 
  Country: None (occurrence: None)
  Receive Date: 20101115
  Receipt Date: 20101101
  Transmission Date: 20110411
  Serious: Yes (Other)
  Sender: FDA-Public Use
  Company Number: 003710

PATIENT
  Age: 72 Year
  Sex: Male

DRUGS (5)
  1. MACUGEN [Suspect]
     Indication: CHOROIDAL NEOVASCULARISATION
     Dosage: 0.3MG, INTROOCULAR
     Route: 031
     Dates: start: 20081218
  2. MACUGEN [Suspect]
     Indication: MACULAR DEGENERATION
     Dosage: 0.3MG, INTROOCULAR
     Route: 031
     Dates: start: 20081218
  3. ADONA (CARBAZOCHROME SODIUM SULFONATE) [Concomitant]
  4. CARNACULIN (PANCREAS EXTRACT) [Concomitant]
  5. LEVOFLOXACIN [Concomitant]

REACTIONS (1)
  - PROSTATIC SPECIFIC ANTIGEN INCREASED [None]
